FAERS Safety Report 24122084 (Version 1)
Quarter: 2024Q3

REPORT INFORMATION
  Report Type: Report from Study
  Country: CA (occurrence: CA)
  Receive Date: 20240722
  Receipt Date: 20240722
  Transmission Date: 20241016
  Serious: Yes (Hospitalization)
  Sender: GILEAD
  Company Number: CA-GLAXOSMITHKLINE-CA2024AMR088495

PATIENT
  Age: 82 Year
  Sex: Female

DRUGS (1)
  1. AMBRISENTAN [Suspect]
     Active Substance: AMBRISENTAN
     Indication: Pulmonary arterial hypertension
     Dosage: 10 MG, QD (IN 1 DAY, DAILY/SHE STOPPED TAKING VOLIBRIS AFTER 6 DAYS)
     Route: 048
     Dates: start: 20240621, end: 202406

REACTIONS (1)
  - Peripheral swelling [Unknown]
